FAERS Safety Report 23963342 (Version 1)
Quarter: 2024Q2

REPORT INFORMATION
  Report Type: Spontaneous
  Country: US (occurrence: None)
  Receive Date: 20240610
  Receipt Date: 20240610
  Transmission Date: 20240716
  Serious: Yes (Hospitalization)
  Sender: FDA-Public Use
  Company Number: None

PATIENT
  Age: 59 Year
  Sex: Female
  Weight: 68.95 kg

DRUGS (2)
  1. HUMATE-P [Suspect]
     Active Substance: HUMAN COAGULATION FACTOR VIII/VON WILLEBRAND FACTOR COMPLEX
     Indication: Von Willebrand^s disease
     Dosage: OTHER FREQUENCY : DAILY FOR 4 DAYS;?
     Route: 042
     Dates: start: 20240517, end: 20240528
  2. HUMATE-P [Suspect]
     Active Substance: HUMAN COAGULATION FACTOR VIII/VON WILLEBRAND FACTOR COMPLEX
     Indication: Von Willebrand^s disease
     Dosage: OTHER FREQUENCY : DAILY FOR 4 DAYS;?
     Route: 042
     Dates: start: 20240517, end: 20240528

REACTIONS (5)
  - Orthostatic hypotension [None]
  - Hyperhidrosis [None]
  - Thrombocytosis [None]
  - Autonomic nervous system imbalance [None]
  - Flushing [None]

NARRATIVE: CASE EVENT DATE: 20240528
